FAERS Safety Report 9995275 (Version 1)
Quarter: 2014Q1

REPORT INFORMATION
  Report Type: Spontaneous
  Country: CN (occurrence: CN)
  Receive Date: 20140311
  Receipt Date: 20140311
  Transmission Date: 20141002
  Serious: Yes (Hospitalization)
  Sender: FDA-Public Use
  Company Number: CN-ASTELLAS-2014JP001906

PATIENT
  Age: 34 Year
  Sex: Male
  Weight: 53 kg

DRUGS (6)
  1. TACROLIMUS SUSTAINED-RELEASE CAPSULES [Suspect]
     Indication: PROPHYLAXIS AGAINST TRANSPLANT REJECTION
     Dosage: UNK
     Route: 048
     Dates: start: 20140126
  2. ATG-FRESENIUS S [Suspect]
     Indication: IMMUNOSUPPRESSION
     Dosage: 110 MG, UID/QD
     Route: 042
     Dates: start: 20140125, end: 20140129
  3. CELLCEPT                           /01275102/ [Concomitant]
     Indication: PROPHYLAXIS AGAINST TRANSPLANT REJECTION
     Dosage: UNK
     Route: 048
     Dates: start: 20140126
  4. SOLU-MEDROL [Concomitant]
     Indication: PROPHYLAXIS AGAINST TRANSPLANT REJECTION
     Dosage: UNK
     Route: 042
     Dates: start: 20140125, end: 20140127
  5. MEDROL                             /00049601/ [Concomitant]
     Indication: PROPHYLAXIS AGAINST TRANSPLANT REJECTION
     Dosage: UNK
     Route: 048
     Dates: start: 20140128
  6. VALSARTAN [Concomitant]
     Indication: HYPERTENSION
     Dosage: 80 MG, UID/QD
     Route: 048

REACTIONS (1)
  - Impaired healing [Recovering/Resolving]
